FAERS Safety Report 11823344 (Version 5)
Quarter: 2016Q1

REPORT INFORMATION
  Report Type: Spontaneous
  Country: US (occurrence: US)
  Receive Date: 20151210
  Receipt Date: 20160302
  Transmission Date: 20160525
  Serious: Yes (Other)
  Sender: FDA-Public Use
  Company Number: US-ELI_LILLY_AND_COMPANY-US201512000340

PATIENT
  Age: 49 Year
  Sex: Female

DRUGS (6)
  1. HALDOL [Concomitant]
     Active Substance: HALOPERIDOL
     Indication: PSYCHOTIC DISORDER
     Dosage: 2 MG, EACH MORNING
     Route: 065
     Dates: start: 20151015, end: 20151019
  2. ZYPREXA ZYDIS [Suspect]
     Active Substance: OLANZAPINE
     Dosage: 30 MG, UNKNOWN
     Route: 048
     Dates: start: 20151019, end: 20151029
  3. OLANZAPINE. [Suspect]
     Active Substance: OLANZAPINE
     Indication: DELUSION
  4. ZYPREXA ZYDIS [Suspect]
     Active Substance: OLANZAPINE
     Indication: PSYCHOTIC DISORDER
     Dosage: UNK, UNKNOWN
     Route: 048
     Dates: start: 20150930
  5. OLANZAPINE. [Suspect]
     Active Substance: OLANZAPINE
     Indication: PSYCHOTIC DISORDER
     Dosage: UNK, UNKNOWN
     Route: 030
     Dates: start: 20150929, end: 20151029
  6. ZYPREXA ZYDIS [Suspect]
     Active Substance: OLANZAPINE
     Indication: DELUSION
     Dosage: 15 MG, QD
     Route: 048
     Dates: start: 20151002

REACTIONS (11)
  - Neck pain [Unknown]
  - Blunted affect [Unknown]
  - Urinary tract infection [Unknown]
  - Vulvovaginal candidiasis [Recovered/Resolved]
  - Blood sodium decreased [Unknown]
  - Chest pain [Unknown]
  - Musculoskeletal pain [Unknown]
  - Blood urine present [Unknown]
  - Blood thyroid stimulating hormone decreased [Unknown]
  - Type 2 diabetes mellitus [Recovering/Resolving]
  - Cystitis [Recovered/Resolved]

NARRATIVE: CASE EVENT DATE: 20151009
